FAERS Safety Report 21977352 (Version 1)
Quarter: 2023Q1

REPORT INFORMATION
  Report Type: Spontaneous
  Country: US (occurrence: None)
  Receive Date: 20230209
  Receipt Date: 20230209
  Transmission Date: 20230418
  Serious: Yes (Hospitalization, Disabling, Other)
  Sender: FDA-Public Use
  Company Number: None

PATIENT
  Age: 56 Year
  Sex: Female
  Weight: 45.36 kg

DRUGS (1)
  1. FAMOTIDINE [Suspect]
     Active Substance: FAMOTIDINE
     Indication: Cough
     Dosage: FREQUENCY : TWICE A DAY;?
     Route: 048
     Dates: start: 20210901, end: 20220820

REACTIONS (26)
  - Medial tibial stress syndrome [None]
  - Burning sensation [None]
  - Myofascial pain syndrome [None]
  - Pain in extremity [None]
  - Arthralgia [None]
  - Pain [None]
  - Diaphragmalgia [None]
  - Pain in extremity [None]
  - Muscle spasms [None]
  - Arthralgia [None]
  - Tendon pain [None]
  - Muscle atrophy [None]
  - Weight decreased [None]
  - Exercise tolerance decreased [None]
  - Asthenia [None]
  - Anxiety [None]
  - Insomnia [None]
  - Erythema [None]
  - Abdominal lymphadenopathy [None]
  - Hepatic steatosis [None]
  - Malabsorption [None]
  - Osteoporosis [None]
  - Tooth resorption [None]
  - Gingival recession [None]
  - Gingival pain [None]
  - Mastication disorder [None]
